FAERS Safety Report 19597249 (Version 1)
Quarter: 2021Q3

REPORT INFORMATION
  Report Type: Report from Study
  Country: US (occurrence: US)
  Receive Date: 20210723
  Receipt Date: 20210723
  Transmission Date: 20211014
  Serious: Yes (Other)
  Sender: FDA-Public Use
  Company Number: US-SUN PHARMACEUTICAL INDUSTRIES LTD-2021R1-304729

PATIENT
  Age: 39 Year
  Sex: Female

DRUGS (8)
  1. DEPOT LEUPROLIDE [Concomitant]
     Indication: OVARIAN REPAIR
     Dosage: 11.25 MILLIGRAM
     Route: 065
  2. DOXORUBICIN [Concomitant]
     Active Substance: DOXORUBICIN
     Indication: CHEMOTHERAPY
     Dosage: 132 MILLIGRAM
     Route: 065
  3. LETROZOLE. [Suspect]
     Active Substance: LETROZOLE
     Indication: OESTRADIOL INCREASED
     Dosage: 7.5 MILLIGRAM, DAILY
     Route: 048
  4. PEGFILGRASTIM [Concomitant]
     Active Substance: PEGFILGRASTIM
     Indication: PRODUCT USED FOR UNKNOWN INDICATION
     Dosage: UNK
     Route: 065
  5. LEUPROLIDE [Suspect]
     Active Substance: LEUPROLIDE
     Indication: OVULATION INDUCTION
     Dosage: 4 MILLIGRAM
     Route: 065
  6. CETRORELIX [Suspect]
     Active Substance: CETRORELIX
     Indication: ANOVULATORY CYCLE
     Dosage: UNK
     Route: 065
  7. DOXYCYCLINE. [Concomitant]
     Active Substance: DOXYCYCLINE
     Indication: INFECTION PROPHYLAXIS
     Dosage: UNK
     Route: 065
  8. CYCLOPHOSPHAMIDE. [Concomitant]
     Active Substance: CYCLOPHOSPHAMIDE
     Indication: CHEMOTHERAPY
     Dosage: 1320 MILLIGRAM
     Route: 065

REACTIONS (1)
  - Ovarian hyperstimulation syndrome [Recovering/Resolving]
